FAERS Safety Report 10029172 (Version 2)
Quarter: 2014Q2

REPORT INFORMATION
  Report Type: Report from Study
  Country: US (occurrence: US)
  Receive Date: 20140321
  Receipt Date: 20140602
  Transmission Date: 20141212
  Serious: Yes (Hospitalization)
  Sender: FDA-Public Use
  Company Number: US-US-EMD SERONO, INC.-7276441

PATIENT
  Age: 41 Year
  Sex: Female

DRUGS (1)
  1. REBIF [Suspect]
     Indication: MULTIPLE SCLEROSIS
     Route: 058
     Dates: start: 20130221, end: 201402

REACTIONS (4)
  - Pneumonia [Recovering/Resolving]
  - Immune system disorder [Unknown]
  - Weight decreased [Unknown]
  - White blood cell count decreased [Recovered/Resolved]
